FAERS Safety Report 17918022 (Version 3)
Quarter: 2020Q3

REPORT INFORMATION
  Report Type: Spontaneous
  Country: FR (occurrence: FR)
  Receive Date: 20200619
  Receipt Date: 20200710
  Transmission Date: 20201103
  Serious: Yes (Hospitalization)
  Sender: FDA-Public Use
  Company Number: FR-CELGENEUS-FRA-20200409308

PATIENT
  Age: 68 Year
  Sex: Female
  Weight: 80 kg

DRUGS (32)
  1. DEXAMETHASONE. [Suspect]
     Active Substance: DEXAMETHASONE
     Indication: PLASMA CELL MYELOMA
     Dosage: 20 MILLIGRAM
     Route: 048
     Dates: start: 20161005, end: 20190813
  2. FUROSEMIDE. [Concomitant]
     Active Substance: FUROSEMIDE
     Indication: HYPERTENSION
     Dosage: 20 MILLIGRAM
     Route: 048
     Dates: start: 20161008, end: 20161012
  3. PANTOPRAZOLE [Concomitant]
     Active Substance: PANTOPRAZOLE
     Indication: PRODUCT USED FOR UNKNOWN INDICATION
     Dosage: IN THE EVENING
     Route: 065
  4. HEMOCLAR [Concomitant]
     Indication: PRODUCT USED FOR UNKNOWN INDICATION
     Dosage: 0.5 UNSPECIFIED UNITS
     Route: 061
     Dates: start: 20161229
  5. MOSCONTIN [Concomitant]
     Active Substance: MORPHINE SULFATE
     Dosage: 40 MILLIGRAM
     Route: 048
     Dates: end: 20190121
  6. TELMISARTAN. [Concomitant]
     Active Substance: TELMISARTAN
     Indication: PRODUCT USED FOR UNKNOWN INDICATION
     Dosage: IN THE MORNING
     Route: 048
     Dates: start: 20170726
  7. FUROSEMIDE. [Concomitant]
     Active Substance: FUROSEMIDE
     Dosage: 20 MILLIGRAM
     Route: 048
     Dates: start: 20170408, end: 20170505
  8. PRIMPERAN [Concomitant]
     Active Substance: METOCLOPRAMIDE HYDROCHLORIDE
     Indication: PRODUCT USED FOR UNKNOWN INDICATION
     Dosage: 2?3 DAY
     Route: 065
  9. CALCIUM [Concomitant]
     Active Substance: CALCIUM
     Indication: OSTEOPOROSIS PROPHYLAXIS
     Dosage: 1000 MILLIGRAM
     Route: 048
     Dates: start: 20161019
  10. KALEORID [Concomitant]
     Active Substance: POTASSIUM CHLORIDE
     Indication: PRODUCT USED FOR UNKNOWN INDICATION
     Dosage: IN MORNING AND EVENING
     Route: 065
     Dates: start: 20170726
  11. INNOHEP [Concomitant]
     Active Substance: TINZAPARIN SODIUM
     Indication: BONE PAIN
     Dosage: 16000 IU (INTERNATIONAL UNIT)
     Route: 058
     Dates: start: 20161005, end: 20161027
  12. KARDEGIC [Concomitant]
     Active Substance: ASPIRIN DL-LYSINE
     Indication: CORONARY ARTERY INSUFFICIENCY
     Dosage: 75 MILLIGRAM
     Route: 048
  13. VESICARE [Concomitant]
     Active Substance: SOLIFENACIN SUCCINATE
     Indication: MICTURITION URGENCY
     Dosage: 5 MILLIGRAM
     Route: 048
     Dates: start: 20170726
  14. HEMOCLAR [Concomitant]
     Indication: ANTIVIRAL PROPHYLAXIS
  15. MOSCONTIN [Concomitant]
     Active Substance: MORPHINE SULFATE
     Dosage: 60 MILLIGRAM
     Route: 048
  16. ESOMEPRAZOLE. [Concomitant]
     Active Substance: ESOMEPRAZOLE MAGNESIUM
     Indication: GASTROOESOPHAGEAL REFLUX DISEASE
     Dosage: 40 MILLIGRAM
     Route: 048
  17. MOSCONTIN [Concomitant]
     Active Substance: MORPHINE SULFATE
     Indication: BACK PAIN
     Dosage: 80 MILLIGRAM
     Route: 048
     Dates: start: 20181029
  18. CYMBALTA [Concomitant]
     Active Substance: DULOXETINE HYDROCHLORIDE
     Indication: PRODUCT USED FOR UNKNOWN INDICATION
     Dosage: IN THE EVENING
     Route: 065
  19. INNOHEP [Concomitant]
     Active Substance: TINZAPARIN SODIUM
     Dosage: 14000 IU (INTERNATIONAL UNIT)
     Route: 058
     Dates: start: 20161027, end: 20170324
  20. ZOMETA [Concomitant]
     Active Substance: ZOLEDRONIC ACID
     Indication: FRACTURE
     Route: 041
     Dates: start: 20180409
  21. ZOMETA [Concomitant]
     Active Substance: ZOLEDRONIC ACID
     Indication: ANTIVIRAL PROPHYLAXIS
  22. LENALIDOMIDE [Suspect]
     Active Substance: LENALIDOMIDE
     Indication: PLASMA CELL MYELOMA
     Dosage: 15 MILLIGRAM
     Route: 048
     Dates: start: 20161005, end: 20161230
  23. DARATUMUMAB [Concomitant]
     Active Substance: DARATUMUMAB
     Indication: PLASMA CELL MYELOMA
     Dosage: 1360 MILLIGRAM
     Route: 041
     Dates: start: 20161005, end: 20161026
  24. FUROSEMIDE. [Concomitant]
     Active Substance: FUROSEMIDE
     Indication: OEDEMA PERIPHERAL
     Dosage: 20 MILLIGRAM
     Route: 048
     Dates: start: 20161013, end: 20170407
  25. FUROSEMIDE. [Concomitant]
     Active Substance: FUROSEMIDE
     Dosage: 20 MILLIGRAM
     Route: 048
     Dates: start: 20171023, end: 20180304
  26. PARACETAMOL [Concomitant]
     Active Substance: ACETAMINOPHEN
     Indication: BONE PAIN
     Route: 048
  27. VALACICLOVIR [Concomitant]
     Active Substance: VALACYCLOVIR HYDROCHLORIDE
     Indication: ANTIVIRAL PROPHYLAXIS
     Dosage: 1000 MILLIGRAM
     Route: 048
     Dates: start: 20161005
  28. ACTISKENAN [Concomitant]
     Active Substance: MORPHINE SULFATE
     Indication: BONE PAIN
     Dosage: 40 MILLIGRAM
     Route: 048
     Dates: start: 20161104
  29. MOSCONTIN [Concomitant]
     Active Substance: MORPHINE SULFATE
     Dosage: 70 MILLIGRAM
     Route: 048
  30. FUROSEMIDE. [Concomitant]
     Active Substance: FUROSEMIDE
     Dosage: 60 MILLIGRAM
     Route: 048
     Dates: start: 20180305
  31. INNOHEP [Concomitant]
     Active Substance: TINZAPARIN SODIUM
     Dosage: 12000 IU (INTERNATIONAL UNIT)
     Route: 058
     Dates: start: 20170324
  32. ACTISKENAN [Concomitant]
     Active Substance: MORPHINE SULFATE
     Indication: ANTIVIRAL PROPHYLAXIS

REACTIONS (1)
  - Cancer pain [Recovered/Resolved]

NARRATIVE: CASE EVENT DATE: 20191205
